FAERS Safety Report 7249484-4 (Version None)
Quarter: 2011Q1

REPORT INFORMATION
  Report Type: 
  Country: None (occurrence: None)
  Receive Date: 20110128
  Receipt Date: 20101203
  Transmission Date: 20110831
  Serious: Yes (Hospitalization, Other)
  Sender: FDA-Public Use
  Company Number: US-BAYER-200930036NA

PATIENT
  Sex: Female
  Weight: 83 kg

DRUGS (4)
  1. YAZ [Suspect]
     Route: 048
     Dates: start: 20080430, end: 20090108
  2. EFFEXOR XR [Concomitant]
     Indication: DEPRESSION
  3. YAZ [Suspect]
     Indication: STRESS
     Route: 048
     Dates: start: 20070614, end: 20080124
  4. EFFEXOR XR [Concomitant]
     Indication: STRESS
     Dosage: 100 MG (DAILY DOSE), ,
     Dates: start: 20070101

REACTIONS (5)
  - DEEP VEIN THROMBOSIS [None]
  - HYPOAESTHESIA [None]
  - OEDEMA PERIPHERAL [None]
  - INJURY [None]
  - PAIN IN EXTREMITY [None]
